FAERS Safety Report 7242190-1 (Version None)
Quarter: 2011Q1

REPORT INFORMATION
  Report Type: 
  Country: None (occurrence: None)
  Receive Date: 20110124
  Receipt Date: 20110110
  Transmission Date: 20110831
  Serious: Yes (Life-Threatening, Other)
  Sender: FDA-Public Use
  Company Number: FR-GENENTECH-312496

PATIENT
  Age: 50 Year
  Sex: Male

DRUGS (6)
  1. CYCLOPHOSPHAMIDE [Suspect]
     Indication: WALDENSTROM'S MACROGLOBULINAEMIA
     Dosage: 250 MG/M2, UNK
     Route: 042
  2. RITUXIMAB [Suspect]
     Indication: WALDENSTROM'S MACROGLOBULINAEMIA
     Dosage: 375 MG/M2, UNK
     Route: 042
  3. RITUXIMAB [Suspect]
     Dosage: 375 MG/M2, UNK
     Route: 042
  4. CYCLOPHOSPHAMIDE [Suspect]
     Dosage: 250 MG/M2, UNK
     Route: 042
  5. FLUDARABINE [Suspect]
     Dosage: 40 MG/M2, UNK
     Route: 042
  6. FLUDARABINE [Suspect]
     Indication: WALDENSTROM'S MACROGLOBULINAEMIA
     Dosage: 40 MG/M2, UNK
     Route: 042

REACTIONS (2)
  - DISSEMINATED INTRAVASCULAR COAGULATION [None]
  - FEBRILE NEUTROPENIA [None]
